FAERS Safety Report 5224755-1 (Version None)
Quarter: 2007Q1

REPORT INFORMATION
  Report Type: 
  Country: None (occurrence: None)
  Receive Date: 20070129
  Receipt Date: 20070129
  Transmission Date: 20070707
  Serious: No
  Sender: FDA-Public Use
  Company Number: None

PATIENT
  Age: 68 Year
  Sex: Female
  Weight: 65.7716 kg

DRUGS (1)
  1. FLUTICASONE PROPIONATE [Suspect]
     Indication: RESPIRATORY DISORDER
     Dosage: 1 PUFF 6 DAILY ORALLY
     Route: 048
     Dates: start: 20061101

REACTIONS (4)
  - DYSPNOEA [None]
  - MALAISE [None]
  - PHARMACEUTICAL PRODUCT COMPLAINT [None]
  - PYREXIA [None]
